FAERS Safety Report 7991953-3 (Version None)
Quarter: 2011Q4

REPORT INFORMATION
  Report Type: 
  Country: None (occurrence: None)
  Receive Date: 20111219
  Receipt Date: 20110503
  Transmission Date: 20120403
  Serious: No
  Sender: FDA-Public Use
  Company Number: US-ASTRAZENECA-2011SE26007

PATIENT
  Age: 63 Year
  Sex: Male

DRUGS (2)
  1. CRESTOR [Suspect]
     Route: 048
  2. VITAMIN TAB [Concomitant]

REACTIONS (1)
  - MUSCULOSKELETAL STIFFNESS [None]
